FAERS Safety Report 25183087 (Version 1)
Quarter: 2025Q2

REPORT INFORMATION
  Report Type: Spontaneous
  Country: HR (occurrence: HR)
  Receive Date: 20250410
  Receipt Date: 20250410
  Transmission Date: 20250717
  Serious: Yes (Other)
  Sender: ROCHE
  Company Number: None

PATIENT
  Sex: Male

DRUGS (1)
  1. BEVACIZUMAB [Suspect]
     Active Substance: BEVACIZUMAB
     Indication: Colon cancer
     Route: 065

REACTIONS (7)
  - Chronic kidney disease [Unknown]
  - Nephropathy [Unknown]
  - Vascular wall hypertrophy [Unknown]
  - Proteinuria [Unknown]
  - Atrophy [Unknown]
  - Fibrosis [Unknown]
  - Vascular hyalinosis [Unknown]
